FAERS Safety Report 7286200-4 (Version None)
Quarter: 2011Q1

REPORT INFORMATION
  Report Type: 
  Country: None (occurrence: None)
  Receive Date: 20110126
  Receipt Date: 20100107
  Transmission Date: 20110831
  Serious: Yes (Hospitalization)
  Sender: FDA-Public Use
  Company Number: 2010SP001829

PATIENT
  Age: 29 Year
  Sex: Female
  Weight: 106.5953 kg

DRUGS (2)
  1. MULTI-VITAMIN [Concomitant]
  2. NUVARING [Suspect]
     Indication: CONTRACEPTION
     Dosage: VAG
     Route: 067
     Dates: start: 20070601, end: 20080101

REACTIONS (13)
  - SYNCOPE [None]
  - LOSS OF CONSCIOUSNESS [None]
  - THROMBOSIS [None]
  - DEEP VEIN THROMBOSIS [None]
  - SINUS TACHYCARDIA [None]
  - EYE MOVEMENT DISORDER [None]
  - WEIGHT INCREASED [None]
  - MULTIPLE INJURIES [None]
  - FATIGUE [None]
  - CONVULSION [None]
  - PROTHROMBIN TIME SHORTENED [None]
  - CARDIOMEGALY [None]
  - PULMONARY EMBOLISM [None]
